FAERS Safety Report 9411632 (Version 1)
Quarter: 2013Q3

REPORT INFORMATION
  Report Type: Report from Study
  Country: FR (occurrence: FR)
  Receive Date: 20130722
  Receipt Date: 20130722
  Transmission Date: 20140515
  Serious: Yes (Hospitalization)
  Sender: FDA-Public Use
  Company Number: FR-CELGENEUS-056-21880-13053555

PATIENT
  Age: 61 Year
  Sex: Female
  Weight: 45 kg

DRUGS (7)
  1. REVLIMID [Suspect]
     Indication: ANGIOIMMUNOBLASTIC T-CELL LYMPHOMA
     Dosage: 25 MILLIGRAM
     Route: 048
     Dates: start: 20130422, end: 20130505
  2. REVLIMID [Suspect]
     Dosage: 25 MILLIGRAM
     Route: 048
     Dates: start: 20130521
  3. CYCLOPHOSPHAMIDE [Suspect]
     Indication: ANGIOIMMUNOBLASTIC T-CELL LYMPHOMA
     Route: 065
     Dates: start: 20130422, end: 20130426
  4. DOXORUBICIN [Suspect]
     Indication: ANGIOIMMUNOBLASTIC T-CELL LYMPHOMA
     Route: 065
     Dates: start: 20130422, end: 20130426
  5. VINCRISTINE [Suspect]
     Indication: ANGIOIMMUNOBLASTIC T-CELL LYMPHOMA
     Route: 065
     Dates: start: 20130422, end: 20130426
  6. PREDNISONE [Suspect]
     Indication: ANGIOIMMUNOBLASTIC T-CELL LYMPHOMA
     Route: 065
     Dates: start: 20130422, end: 20130426
  7. ACTONEL [Concomitant]
     Indication: OSTEOPOROSIS
     Route: 065

REACTIONS (1)
  - Lung disorder [Recovered/Resolved]
